FAERS Safety Report 14032848 (Version 1)
Quarter: 2017Q4

REPORT INFORMATION
  Report Type: Report from Study
  Country: US (occurrence: US)
  Receive Date: 20171002
  Receipt Date: 20171002
  Transmission Date: 20180321
  Serious: Yes (Hospitalization)
  Sender: FDA-Public Use
  Company Number: US-VIFOR (INTERNATIONAL) INC.-VIT-2017-09917

PATIENT
  Age: 73 Year
  Sex: Male

DRUGS (14)
  1. SENSIPAR [Concomitant]
     Active Substance: CINACALCET HYDROCHLORIDE
  2. RENA-VITE [Concomitant]
     Active Substance: ASCORBIC ACID\BIOTIN\CALCIUM PANTOTHENATE\CYANOCOBALAMIN\FOLIC ACID\NIACINAMIDE\PYRIDOXINE HYDROCHLORIDE\RIBOFLAVIN\THIAMINE MONONITRATE
  3. ATORVASTATIN [Concomitant]
     Active Substance: ATORVASTATIN
  4. VELTASSA [Suspect]
     Active Substance: PATIROMER
     Indication: HYPERKALAEMIA
     Route: 048
     Dates: start: 20160204
  5. TAMSULOSIN [Concomitant]
     Active Substance: TAMSULOSIN
  6. WARFARIN [Concomitant]
     Active Substance: WARFARIN
  7. DOCQLACE [Concomitant]
     Active Substance: DOCUSATE SODIUM
  8. AMIODARONE [Concomitant]
     Active Substance: AMIODARONE
  9. AMOXICILLIN~~CLAVULANATE POTASSIUM [Concomitant]
  10. ENOXAPARIN [Concomitant]
     Active Substance: ENOXAPARIN
  11. AMLODIPINE [Concomitant]
     Active Substance: AMLODIPINE BESYLATE
  12. VENTOLIN [Concomitant]
     Active Substance: ALBUTEROL SULFATE
  13. INCRUSE ELLIPTA [Concomitant]
     Active Substance: UMECLIDINIUM BROMIDE
  14. CALCIUM ACETATE. [Concomitant]
     Active Substance: CALCIUM ACETATE

REACTIONS (1)
  - Rehabilitation therapy [Not Recovered/Not Resolved]

NARRATIVE: CASE EVENT DATE: 20170912
